FAERS Safety Report 9684015 (Version 1)
Quarter: 2013Q4

REPORT INFORMATION
  Report Type: Spontaneous
  Country: US (occurrence: US)
  Receive Date: 20131112
  Receipt Date: 20131112
  Transmission Date: 20140711
  Serious: No
  Sender: FDA-Public Use
  Company Number: US-ENDO PHARMACEUTICALS INC.-DIAZ20120018

PATIENT
  Sex: Male

DRUGS (1)
  1. DIAZEPAM 5MG/ML HOSPIRA [Suspect]
     Indication: ANXIETY
     Route: 048
     Dates: start: 20120530, end: 20120605

REACTIONS (3)
  - Panic attack [Unknown]
  - Withdrawal syndrome [Unknown]
  - Drug ineffective [Unknown]
